FAERS Safety Report 10037519 (Version 1)
Quarter: 2014Q1

REPORT INFORMATION
  Report Type: Spontaneous
  Country: US (occurrence: None)
  Receive Date: 20140325
  Receipt Date: 20140325
  Transmission Date: 20141002
  Serious: Yes (Disabling)
  Sender: FDA-Public Use
  Company Number: None

PATIENT
  Age: 63 Year
  Sex: Female
  Weight: 72.58 kg

DRUGS (9)
  1. LEVAQUIN [Suspect]
     Indication: CYSTITIS
     Dosage: DON^T RECALL?WHEN IN THE HOSPITAL FOR THE PNEUMONIA IT WAS IV -} THEN W/THE BLADDER INFECTION IT WAS ORAL (3
     Route: 042
     Dates: start: 201303
  2. QUINNALONES [Concomitant]
  3. QVAR [Concomitant]
  4. COCONUT OIL [Concomitant]
  5. OLIVE LEAF [Concomitant]
  6. CRANBERRY [Concomitant]
  7. MULTI [Concomitant]
  8. TUMERIC [Concomitant]
  9. HYALORONIC ACID [Concomitant]

REACTIONS (3)
  - Tendonitis [None]
  - Musculoskeletal pain [None]
  - Pain in extremity [None]
